FAERS Safety Report 11913694 (Version 13)
Quarter: 2020Q3

REPORT INFORMATION
  Report Type: Spontaneous
  Country: US (occurrence: US)
  Receive Date: 20160113
  Receipt Date: 20200813
  Transmission Date: 20201102
  Serious: Yes (Hospitalization)
  Sender: FDA-Public Use
  Company Number: US-PFIZER INC-2016003961

PATIENT
  Age: 44 Year
  Sex: Female
  Weight: 86 kg

DRUGS (2)
  1. LYRICA [Suspect]
     Active Substance: PREGABALIN
     Indication: NEUROPATHY PERIPHERAL
  2. LYRICA [Suspect]
     Active Substance: PREGABALIN
     Indication: MIGRAINE
     Dosage: 100 MG, 2X/DAY (1 CAPSULE, 100 MG, TWICE DAILY)
     Route: 048

REACTIONS (17)
  - Influenza like illness [Unknown]
  - Off label use [Unknown]
  - Drug effective for unapproved indication [Unknown]
  - Fear [Unknown]
  - Chronic obstructive pulmonary disease [Unknown]
  - Depression [Unknown]
  - Paranoia [Unknown]
  - Loss of personal independence in daily activities [Unknown]
  - Withdrawal syndrome [Unknown]
  - Diarrhoea [Unknown]
  - Headache [Unknown]
  - Vomiting [Unknown]
  - Cardiac disorder [Unknown]
  - Illness [Unknown]
  - Pain [Unknown]
  - Intentional product misuse [Unknown]
  - Asthenia [Unknown]
